FAERS Safety Report 14449469 (Version 1)
Quarter: 2018Q1

REPORT INFORMATION
  Report Type: Spontaneous
  Country: PE (occurrence: PE)
  Receive Date: 20180127
  Receipt Date: 20180127
  Transmission Date: 20180509
  Serious: Yes (Death, Other)
  Sender: FDA-Public Use
  Company Number: PE-SUN PHARMACEUTICAL INDUSTRIES LTD-2018RR-161549

PATIENT
  Age: 56 Year
  Sex: Male

DRUGS (2)
  1. TEMOZOLOMIDE. [Suspect]
     Active Substance: TEMOZOLOMIDE
     Indication: GLIOBLASTOMA
     Dosage: 125 MG, DAILY
     Route: 065
  2. TEMOZOLOMIDE. [Suspect]
     Active Substance: TEMOZOLOMIDE
     Dosage: 250 MG, DAILY FOR 5 DAYS A WEEK DURING 28 DAYS WAS CONTINUED DURING SIX ADDITIONAL COURSES
     Route: 065

REACTIONS (3)
  - Drug effect incomplete [Fatal]
  - Visual impairment [Unknown]
  - Headache [Unknown]
